FAERS Safety Report 7496088-4 (Version None)
Quarter: 2011Q2

REPORT INFORMATION
  Report Type: 
  Country: None (occurrence: None)
  Receive Date: 20110520
  Receipt Date: 20110520
  Transmission Date: 20111010
  Serious: Yes (Hospitalization)
  Sender: FDA-Public Use
  Company Number: None

PATIENT
  Age: 14 Year
  Sex: Female

DRUGS (3)
  1. ROPIVACAINE HYDROCHLORIDE [Suspect]
     Indication: POSTOPERATIVE ANALGESIA
     Dosage: 8 ML/HR, INTERSCALENE
  2. AUTOFUSER MVBXL DISPOSABLE INFUSTION PUMP [Concomitant]
  3. ARROW 19G STIMICATH INFUSION CATHETER [Concomitant]

REACTIONS (2)
  - NAUSEA [None]
  - CONVULSION [None]
